FAERS Safety Report 5348401-1 (Version None)
Quarter: 2007Q2

REPORT INFORMATION
  Report Type: 
  Country: None (occurrence: None)
  Receive Date: 20070605
  Receipt Date: 20070521
  Transmission Date: 20071010
  Serious: Yes (Other)
  Sender: FDA-Public Use
  Company Number: 2007RR-07747

PATIENT
  Age: 60 Year
  Sex: Male
  Weight: 98 kg

DRUGS (6)
  1. CEPHALEXIN [Suspect]
     Indication: URINARY TRACT INFECTION
     Dosage: 1 DF, TID, ORAL
     Route: 048
     Dates: start: 20070429, end: 20070504
  2. CODEINE PHOSPHATE (CODEINE) [Concomitant]
  3. DUTASTERIDE [Concomitant]
  4. NIQUITIN [Concomitant]
  5. NITROFURANTOIN [Concomitant]
  6. TAMSULOSIN HYDROCHLORIDE EXTENDED RELEASE (TAMSULOSIN) [Concomitant]

REACTIONS (5)
  - HEADACHE [None]
  - JOINT SWELLING [None]
  - OEDEMA PERIPHERAL [None]
  - PAIN [None]
  - RASH GENERALISED [None]
